FAERS Safety Report 8032844-1 (Version None)
Quarter: 2011Q4

REPORT INFORMATION
  Report Type: 
  Country: None (occurrence: None)
  Receive Date: 20111202
  Receipt Date: 20100104
  Transmission Date: 20120403
  Serious: Yes (Hospitalization, Other)
  Sender: FDA-Public Use
  Company Number: 2009-198050-NL

PATIENT
  Age: 25 Year
  Sex: Female
  Weight: 73.0291 kg

DRUGS (3)
  1. FLEXERIL [Concomitant]
  2. NUVARING [Suspect]
     Indication: CONTRACEPTION
     Dosage: 1 DF;Q3W;VAG
     Route: 067
     Dates: start: 20070314, end: 20071015
  3. SYNTHROID [Concomitant]

REACTIONS (17)
  - TEMPERATURE INTOLERANCE [None]
  - ARTHRALGIA [None]
  - SOMNOLENCE [None]
  - CHILLS [None]
  - WEIGHT FLUCTUATION [None]
  - VULVOVAGINAL CANDIDIASIS [None]
  - MUSCLE STRAIN [None]
  - BACK PAIN [None]
  - FATIGUE [None]
  - THROMBOSIS [None]
  - OBSESSIVE-COMPULSIVE DISORDER [None]
  - DEPRESSION [None]
  - HEADACHE [None]
  - PULMONARY EMBOLISM [None]
  - SLEEP PARALYSIS [None]
  - SARCOIDOSIS [None]
  - BRONCHITIS [None]
